FAERS Safety Report 8608265-7 (Version None)
Quarter: 2012Q3

REPORT INFORMATION
  Report Type: 
  Country: None (occurrence: None)
  Receive Date: 20120821
  Receipt Date: 20120810
  Transmission Date: 20120928
  Serious: No
  Sender: FDA-Public Use
  Company Number: US-ASTRAZENECA-2012SE56883

PATIENT
  Age: 80 Year
  Sex: Male

DRUGS (1)
  1. PULMICORT [Suspect]
     Route: 055

REACTIONS (3)
  - DYSPNOEA [None]
  - INSOMNIA [None]
  - DRUG DOSE OMISSION [None]
